FAERS Safety Report 17896695 (Version 4)
Quarter: 2022Q1

REPORT INFORMATION
  Report Type: Report from Study
  Country: AR (occurrence: AR)
  Receive Date: 20200615
  Receipt Date: 20220123
  Transmission Date: 20220424
  Serious: Yes (Other)
  Sender: FDA-Public Use
  Company Number: AR-NOVARTISPH-NVSC2020AR130813

PATIENT
  Age: 65 Year
  Sex: Female

DRUGS (5)
  1. TASIGNA [Suspect]
     Active Substance: NILOTINIB
     Indication: Chronic myeloid leukaemia
     Dosage: 400 MG, Q12H (800 MG, DAILY)
     Route: 065
     Dates: start: 20200113
  2. TASIGNA [Suspect]
     Active Substance: NILOTINIB
     Dosage: 600 MG, QD (4 X 150 MG)
     Route: 065
     Dates: start: 20200113
  3. TASIGNA [Suspect]
     Active Substance: NILOTINIB
     Dosage: 800 MG, BID (TABLET)
     Route: 048
     Dates: start: 20200113
  4. GLIVEC [Suspect]
     Active Substance: IMATINIB MESYLATE
     Indication: Chronic myeloid leukaemia
     Dosage: 200 MG
     Route: 065
     Dates: start: 201708
  5. GLIVEC [Suspect]
     Active Substance: IMATINIB MESYLATE
     Dosage: 400 MG
     Route: 065
     Dates: end: 202001

REACTIONS (12)
  - Drug resistance [Unknown]
  - Feeling abnormal [Unknown]
  - Nervousness [Unknown]
  - Cardiac disorder [Recovering/Resolving]
  - Blood pressure increased [Recovering/Resolving]
  - Hypertension [Recovering/Resolving]
  - Platelet count increased [Not Recovered/Not Resolved]
  - Anxiety [Unknown]
  - Chest pain [Recovering/Resolving]
  - Contusion [Unknown]
  - Incorrect dose administered [Unknown]
  - Product dispensing error [Unknown]

NARRATIVE: CASE EVENT DATE: 20200501
